FAERS Safety Report 13401997 (Version 1)
Quarter: 2017Q2

REPORT INFORMATION
  Report Type: Spontaneous
  Country: CN (occurrence: CN)
  Receive Date: 20170404
  Receipt Date: 20170404
  Transmission Date: 20170830
  Serious: Yes (Other)
  Sender: FDA-Public Use
  Company Number: CN-009507513-1703CHN014504

PATIENT

DRUGS (2)
  1. POSACONAZOLE [Suspect]
     Active Substance: POSACONAZOLE
     Indication: ANTIFUNGAL PROPHYLAXIS
     Dosage: 200 MG, 3 TIMES DAILY
     Route: 048
  2. VINDESINE [Interacting]
     Active Substance: VINDESINE
     Indication: CHEMOTHERAPY

REACTIONS (2)
  - Neurotoxicity [Unknown]
  - Drug interaction [Unknown]
